FAERS Safety Report 17575538 (Version 1)
Quarter: 2020Q1

REPORT INFORMATION
  Report Type: Spontaneous
  Country: US (occurrence: US)
  Receive Date: 20200324
  Receipt Date: 20200324
  Transmission Date: 20200409
  Serious: No
  Sender: FDA-Public Use
  Company Number: US-PFIZER INC-2020121015

PATIENT
  Age: 75 Year
  Sex: Female

DRUGS (1)
  1. PREMARIN [Suspect]
     Active Substance: ESTROGENS, CONJUGATED
     Indication: VAGINAL DISORDER
     Dosage: EVERY COUPLE DAYS AFTER SHOWERING AND USES A LITTLE LESS THAN THE SIZE OF A SMALL PEARL WITH EACH US
     Route: 067
     Dates: start: 201912

REACTIONS (3)
  - Product packaging issue [Unknown]
  - Skin disorder [Unknown]
  - Off label use [Unknown]
